FAERS Safety Report 4434530-3 (Version None)
Quarter: 2004Q3

REPORT INFORMATION
  Report Type: 
  Country: None (occurrence: None)
  Receive Date: 20040726
  Receipt Date: 20040423
  Transmission Date: 20050211
  Serious: No
  Sender: FDA-Public Use
  Company Number: USA040464807

PATIENT
  Age: 69 Year
  Sex: Female
  Weight: 59 kg

DRUGS (5)
  1. FORTEO [Suspect]
     Indication: OSTEOPOROSIS
     Dosage: 20 UG DAY
     Dates: start: 20040411
  2. ATIVAN [Concomitant]
  3. PRILOSEC [Concomitant]
  4. CALTRATE (CALCIUM CARBONATE) [Concomitant]
  5. MULTIVITAMIN [Concomitant]

REACTIONS (4)
  - FEELING ABNORMAL [None]
  - HEART RATE INCREASED [None]
  - MUSCLE CRAMP [None]
  - PALPITATIONS [None]
